FAERS Safety Report 4765118-2 (Version None)
Quarter: 2005Q3

REPORT INFORMATION
  Report Type: 
  Country: None (occurrence: None)
  Receive Date: 20050907
  Receipt Date: 20050825
  Transmission Date: 20060218
  Serious: Yes (Other)
  Sender: FDA-Public Use
  Company Number: US015885

PATIENT
  Age: 10 Year
  Sex: Male

DRUGS (6)
  1. GABITRIL [Suspect]
     Indication: ATTENTION DEFICIT/HYPERACTIVITY DISORDER
     Dosage: 4 MG QD ORAL
     Route: 048
     Dates: start: 20050711, end: 20050711
  2. GABITRIL [Suspect]
     Indication: BIPOLAR DISORDER
     Dosage: 4 MG QD ORAL
     Route: 048
     Dates: start: 20050711, end: 20050711
  3. GABITRIL [Suspect]
     Indication: ATTENTION DEFICIT/HYPERACTIVITY DISORDER
     Dosage: 2 MG QD ORAL
     Route: 048
     Dates: start: 20050712, end: 20050712
  4. GABITRIL [Suspect]
     Indication: BIPOLAR DISORDER
     Dosage: 2 MG QD ORAL
     Route: 048
     Dates: start: 20050712, end: 20050712
  5. SEROQUEL [Concomitant]
  6. ADDERALL 10 [Concomitant]

REACTIONS (3)
  - CONVULSION [None]
  - DYSKINESIA [None]
  - UNRESPONSIVE TO VERBAL STIMULI [None]
